FAERS Safety Report 6064897-4 (Version None)
Quarter: 2009Q1

REPORT INFORMATION
  Report Type: 
  Country: None (occurrence: None)
  Receive Date: 20090203
  Receipt Date: 20090203
  Transmission Date: 20090719
  Serious: Yes (Other)
  Sender: FDA-Public Use
  Company Number: None

PATIENT
  Age: 61 Year
  Sex: Female

DRUGS (2)
  1. KLONOPIN [Suspect]
     Indication: INSOMNIA
     Dosage: TAKE 1 TABLET AT BEDTIME
  2. KLONOPIN [Suspect]
     Indication: RESTLESS LEGS SYNDROME
     Dosage: TAKE 1 TABLET AT BEDTIME

REACTIONS (2)
  - OESOPHAGITIS [None]
  - PRODUCT QUALITY ISSUE [None]
